FAERS Safety Report 22299440 (Version 1)
Quarter: 2023Q2

REPORT INFORMATION
  Report Type: Spontaneous
  Country: GB (occurrence: GB)
  Receive Date: 20230509
  Receipt Date: 20230509
  Transmission Date: 20230722
  Serious: Yes (Other)
  Sender: FDA-Public Use
  Company Number: GB-MHRA-MED-202305041706189180-WSZTQ

PATIENT
  Sex: Female

DRUGS (1)
  1. GABAPENTIN [Suspect]
     Active Substance: GABAPENTIN
     Indication: Vestibular migraine
     Dosage: 300 MILLIGRAM, QD (300MG DAILY)
     Route: 065

REACTIONS (3)
  - Paralysis [Recovered/Resolved]
  - Hallucination [Recovered/Resolved]
  - Headache [Recovering/Resolving]
